FAERS Safety Report 22003750 (Version 1)
Quarter: 2023Q1

REPORT INFORMATION
  Report Type: Spontaneous
  Country: US (occurrence: US)
  Receive Date: 20230217
  Receipt Date: 20230217
  Transmission Date: 20230418
  Serious: Yes (Disabling)
  Sender: FDA-Public Use
  Company Number: US-SA-SAC20230216000051

PATIENT
  Age: 48 Year
  Sex: Female

DRUGS (1)
  1. KEVZARA [Suspect]
     Active Substance: SARILUMAB
     Indication: Rheumatoid arthritis
     Dosage: 200 MG, QOW
     Route: 058
     Dates: start: 202301

REACTIONS (6)
  - Loss of personal independence in daily activities [Unknown]
  - Gait disturbance [Unknown]
  - Malaise [Unknown]
  - Mobility decreased [Unknown]
  - Quality of life decreased [Unknown]
  - Pain [Unknown]
